FAERS Safety Report 11199602 (Version 1)
Quarter: 2015Q2

REPORT INFORMATION
  Report Type: Report from Study
  Country: BR (occurrence: BR)
  Receive Date: 20150618
  Receipt Date: 20150618
  Transmission Date: 20150821
  Serious: Yes (Other)
  Sender: FDA-Public Use
  Company Number: BR-ABBVIE-15K-020-1407673-00

PATIENT
  Sex: Female
  Weight: 49 kg

DRUGS (7)
  1. IMOSEC [Concomitant]
     Active Substance: LOPERAMIDE
     Indication: DIARRHOEA
     Route: 048
     Dates: start: 1980
  2. HUMIRA [Suspect]
     Active Substance: ADALIMUMAB
     Route: 058
  3. HUMIRA [Suspect]
     Active Substance: ADALIMUMAB
     Route: 058
  4. FOLIFER [Concomitant]
     Indication: ANAEMIA
     Route: 048
  5. CENTRUM [Concomitant]
     Active Substance: VITAMINS
     Indication: PRODUCT USED FOR UNKNOWN INDICATION
     Route: 048
     Dates: start: 2013
  6. HUMIRA [Suspect]
     Active Substance: ADALIMUMAB
     Indication: CROHN^S DISEASE
     Route: 058
     Dates: start: 20110101, end: 20110101
  7. COMPLEX B [Concomitant]
     Active Substance: CALCIUM PANTOTHENATE\CYANOCOBALAMIN\NIACINAMIDE\PYRIDOXINE HYDROCHLORIDE\RIBOFLAVIN\THIAMINE MONONITRATE
     Indication: IMMUNE SYSTEM DISORDER
     Route: 048
     Dates: start: 1980

REACTIONS (7)
  - Pain [Unknown]
  - Fatigue [Unknown]
  - Stoma site abscess [Unknown]
  - Somnolence [Unknown]
  - Terminal insomnia [Unknown]
  - Stoma site haemorrhage [Unknown]
  - Stoma site inflammation [Unknown]
